FAERS Safety Report 4552196-9 (Version None)
Quarter: 2004Q4

REPORT INFORMATION
  Report Type: 
  Country: None (occurrence: None)
  Receive Date: 20041217
  Receipt Date: 20040830
  Transmission Date: 20050328
  Serious: No
  Sender: FDA-Public Use
  Company Number: 2004-BP-06244BP(1)

PATIENT
  Sex: Male

DRUGS (1)
  1. SPIRIVA [Suspect]
     Dosage: (18 MCG),

REACTIONS (3)
  - BENIGN PROSTATIC HYPERPLASIA [None]
  - MIDDLE INSOMNIA [None]
  - PAIN [None]
